APPROVED DRUG PRODUCT: VIRAC REX
Active Ingredient: LAPYRIUM CHLORIDE; UNDECOYLIUM CHLORIDE IODINE COMPLEX
Strength: 0.5%;1.8%
Dosage Form/Route: SOLUTION;TOPICAL
Application: N011914 | Product #001
Applicant: CHESEBROUGH PONDS INC
Approved: Approved Prior to Jan 1, 1982 | RLD: No | RS: No | Type: DISCN